FAERS Safety Report 19729364 (Version 1)
Quarter: 2021Q3

REPORT INFORMATION
  Report Type: Spontaneous
  Country: NL (occurrence: NL)
  Receive Date: 20210820
  Receipt Date: 20210820
  Transmission Date: 20211014
  Serious: Yes (Other)
  Sender: FDA-Public Use
  Company Number: NL-SA-2021SA274313

PATIENT
  Sex: Male
  Weight: 99 kg

DRUGS (9)
  1. CLOPIDOGREL BISULFATE. [Suspect]
     Active Substance: CLOPIDOGREL BISULFATE
     Indication: CARDIAC DISORDER
     Dosage: 1 DF, QD
     Dates: start: 202101
  2. METOPROLOL SUCCINATE. [Suspect]
     Active Substance: METOPROLOL SUCCINATE
     Indication: CARDIAC DISORDER
     Dosage: 1 DF, QD
     Dates: start: 202101
  3. ASTRAZENECA COVID?19 VACCINE [Suspect]
     Active Substance: AZD-1222
     Indication: COVID-19 IMMUNISATION
     Dates: start: 20210617
  4. PERINDOPRIL [Suspect]
     Active Substance: PERINDOPRIL
     Indication: CARDIAC DISORDER
     Dosage: UNK
     Dates: start: 202101
  5. AMIODARONE HYDROCHLORIDE. [Suspect]
     Active Substance: AMIODARONE HYDROCHLORIDE
     Indication: CARDIAC DISORDER
     Dosage: 1 DF, QD
     Dates: start: 202101
  6. SIMVASTATINE WINTHROP [Suspect]
     Active Substance: SIMVASTATIN
     Indication: CARDIAC DISORDER
     Dosage: 1 DF, QD
     Dates: start: 202101
  7. TERBINAFINE. [Suspect]
     Active Substance: TERBINAFINE
     Indication: ONYCHOMYCOSIS
     Dosage: 1 DF, QD
     Dates: start: 202105
  8. ACETYLSALICYLIC ACID [Suspect]
     Active Substance: ASPIRIN
     Indication: PRODUCT USED FOR UNKNOWN INDICATION
     Dosage: 1 DF, QD
     Dates: start: 202101
  9. PANTOPRAZOL AB [Concomitant]
     Dosage: 2 DF, QD
     Dates: start: 2013

REACTIONS (7)
  - Body temperature increased [Not Recovered/Not Resolved]
  - Headache [Recovering/Resolving]
  - Pneumonia [Not Recovered/Not Resolved]
  - Myalgia [Not Recovered/Not Resolved]
  - Malaise [Not Recovered/Not Resolved]
  - Chills [Recovered/Resolved]
  - Fatigue [Not Recovered/Not Resolved]
